FAERS Safety Report 10922477 (Version 1)
Quarter: 2015Q1

REPORT INFORMATION
  Report Type: Spontaneous
  Country: CH (occurrence: None)
  Receive Date: 20150311
  Receipt Date: 20150311
  Transmission Date: 20150721
  Serious: Yes (Other)
  Sender: FDA-Public Use
  Company Number: 20150129L

PATIENT
  Age: 27 Year
  Sex: Female

DRUGS (5)
  1. VITAMINS NOS [Concomitant]
     Active Substance: VITAMINS
  2. VENOFER [Suspect]
     Active Substance: IRON SUCROSE
     Indication: IRON DEFICIENCY
     Dosage: 1 IN 1 TOTAL
     Route: 041
     Dates: start: 20150211, end: 20150211
  3. SODIUM CHLORIDE. [Concomitant]
     Active Substance: SODIUM CHLORIDE
  4. UNTRANSDERMAL CONTRACEPTIVES [Concomitant]
  5. PROTEINS NOS [Concomitant]

REACTIONS (10)
  - Hot flush [None]
  - Paraesthesia [None]
  - Nausea [None]
  - Swelling [None]
  - Peripheral coldness [None]
  - Pallor [None]
  - Hypotonia [None]
  - Syncope [None]
  - Tachypnoea [None]
  - Wrong technique in drug usage process [None]

NARRATIVE: CASE EVENT DATE: 20150211
